FAERS Safety Report 8863048 (Version 1)
Quarter: 2012Q4

REPORT INFORMATION
  Report Type: 
  Country: IE (occurrence: IE)
  Receive Date: 20121026
  Receipt Date: 20121026
  Transmission Date: 20130627
  Serious: Yes (Other)
  Sender: FDA-Public Use
  Company Number: IE-009507513-2012SP029759

PATIENT
  Age: 41 Year
  Sex: Female

DRUGS (3)
  1. NUVARING [Suspect]
     Dosage: UNK
     Route: 067
     Dates: start: 201011
  2. CERAZETTE [Concomitant]
     Indication: CONTRACEPTION
     Dosage: UNK
  3. CERAZETTE [Concomitant]
     Dosage: UNK
     Dates: start: 201204

REACTIONS (3)
  - Abortion spontaneous [Unknown]
  - Unintended pregnancy [Unknown]
  - Incorrect drug administration duration [Unknown]
